FAERS Safety Report 4887956-8 (Version None)
Quarter: 2006Q1

REPORT INFORMATION
  Report Type: 
  Country: None (occurrence: None)
  Receive Date: 20060119
  Receipt Date: 20060119
  Transmission Date: 20060701
  Serious: Yes (Hospitalization, Other)
  Sender: FDA-Public Use
  Company Number: None

PATIENT
  Sex: Male
  Weight: 96 kg

DRUGS (3)
  1. FINASTERIDE [Suspect]
     Indication: PROSTATE CANCER
     Dosage: SEE IMAGE
     Route: 048
     Dates: start: 20051207
  2. FLUTAMIDE [Suspect]
     Dosage: SEE IMAGE
     Route: 048
     Dates: start: 19990326, end: 20051207
  3. FLUTAMIDE [Suspect]
     Dosage: SEE IMAGE
     Route: 048
     Dates: start: 20051207

REACTIONS (3)
  - HAEMATURIA [None]
  - MYOCARDIAL INFARCTION [None]
  - URINARY RETENTION [None]
